FAERS Safety Report 6142379-9 (Version None)
Quarter: 2009Q2

REPORT INFORMATION
  Report Type: 
  Country: None (occurrence: None)
  Receive Date: 20090403
  Receipt Date: 20090326
  Transmission Date: 20091009
  Serious: Yes (Other)
  Sender: FDA-Public Use
  Company Number: ES-JNJFOC-20090200176

PATIENT
  Sex: Female

DRUGS (5)
  1. RISPERDAL CONSTA [Suspect]
     Indication: SCHIZOPHRENIA
     Route: 030
  2. RISPERIDONE [Suspect]
     Indication: SCHIZOPHRENIA
     Route: 048
  3. TOPIRAMATE [Suspect]
     Indication: SCHIZOPHRENIA
     Route: 048
  4. LEVOMEPROMAZINE [Suspect]
     Indication: SCHIZOPHRENIA
     Route: 065
  5. LORMETAZEPAM [Suspect]
     Indication: INSOMNIA
     Route: 065

REACTIONS (2)
  - ABORTION SPONTANEOUS [None]
  - DRUG EXPOSURE DURING PREGNANCY [None]
